FAERS Safety Report 8592931-6 (Version None)
Quarter: 2012Q3

REPORT INFORMATION
  Report Type: 
  Country: None (occurrence: None)
  Receive Date: 20120814
  Receipt Date: 20120730
  Transmission Date: 20120928
  Serious: Yes (Other)
  Sender: FDA-Public Use
  Company Number: TW-ROCHE-1099539

PATIENT

DRUGS (5)
  1. HERCEPTIN [Suspect]
     Indication: BREAST CANCER
     Dosage: LOADING DOSE, OVER 90 MIN ON DAY 1, 1ST CYCLE
     Route: 042
  2. HERCEPTIN [Suspect]
     Dosage: FOR 30 MIN ON DAYS 8 AND 15, 1ST CYCLE
     Route: 042
  3. DOCETAXEL [Suspect]
     Indication: BREAST CANCER
     Dosage: ON DAY 1, 1ST CYCLE
     Route: 042
  4. CISPLATIN [Suspect]
     Indication: BREAST CANCER
     Dosage: FOR 24HOURS 1ST CYCLE
     Route: 042
  5. DEXAMETHASONE [Concomitant]
     Dosage: NIGHT BEFORE DOCETAXEL INFUSION, THE MORNING OF THE INFUSION, 1 H BEFORE DOCETAXEL
     Route: 048

REACTIONS (6)
  - NAUSEA [None]
  - ALOPECIA [None]
  - DIARRHOEA [None]
  - HYPERSENSITIVITY [None]
  - ANAEMIA [None]
  - VOMITING [None]
